FAERS Safety Report 8474157-X (Version None)
Quarter: 2012Q2

REPORT INFORMATION
  Report Type: 
  Country: None (occurrence: None)
  Receive Date: 20120628
  Receipt Date: 20120623
  Transmission Date: 20120825
  Serious: No
  Sender: FDA-Public Use
  Company Number: US-PFIZER INC-2012151131

PATIENT
  Sex: Female
  Weight: 68.027 kg

DRUGS (7)
  1. PRILOSEC [Concomitant]
     Indication: GASTRIC DISORDER
     Dosage: UNK
  2. TOVIAZ [Suspect]
     Indication: HYPERTONIC BLADDER
     Dosage: 4 MG, 1X/DAY
     Route: 048
     Dates: start: 20120606
  3. SYMBICORT [Concomitant]
     Dosage: UNK
  4. PULMICORT [Concomitant]
     Dosage: UNK
  5. DIOVAN HCT [Concomitant]
     Dosage: UNK
  6. PAXIL [Concomitant]
     Dosage: UNK
  7. SPIRIVA [Concomitant]
     Indication: ASTHMA
     Dosage: UNK

REACTIONS (5)
  - GASTROOESOPHAGEAL REFLUX DISEASE [None]
  - ORAL DISCOMFORT [None]
  - GASTRIC DISORDER [None]
  - EAR DISCOMFORT [None]
  - NASAL DISCOMFORT [None]
